FAERS Safety Report 9858504 (Version 1)
Quarter: 2014Q1

REPORT INFORMATION
  Report Type: Spontaneous
  Country: US (occurrence: None)
  Receive Date: 20140130
  Receipt Date: 20140130
  Transmission Date: 20141002
  Serious: Yes (Other)
  Sender: FDA-Public Use
  Company Number: None

PATIENT
  Age: 24 Year
  Sex: Female
  Weight: 118.2 kg

DRUGS (1)
  1. MIRENA IUD [Suspect]

REACTIONS (4)
  - Pain [None]
  - Pyrexia [None]
  - Haemorrhage [None]
  - Ovarian disorder [None]
